FAERS Safety Report 16358216 (Version 7)
Quarter: 2019Q3

REPORT INFORMATION
  Report Type: Spontaneous
  Country: US (occurrence: US)
  Receive Date: 20190527
  Receipt Date: 20190722
  Transmission Date: 20191004
  Serious: Yes (Other)
  Sender: FDA-Public Use
  Company Number: US-GLAXOSMITHKLINE-US2019GSK094933

PATIENT
  Sex: Male

DRUGS (7)
  1. WELLBUTRIN [Suspect]
     Active Substance: BUPROPION HYDROCHLORIDE
     Indication: DEPRESSION
     Dosage: UNK
     Route: 065
  2. BUPROPION HYDROCHLORIDE. [Suspect]
     Active Substance: BUPROPION HYDROCHLORIDE
     Indication: DEPRESSION
     Dosage: 75 MG, QD
     Route: 048
  3. BUPROPION. [Suspect]
     Active Substance: BUPROPION
     Indication: PRODUCT USED FOR UNKNOWN INDICATION
     Dosage: 75 MG, QD
     Route: 048
  4. BUPROPION HYDROCHLORIDE. [Suspect]
     Active Substance: BUPROPION HYDROCHLORIDE
     Dosage: 75 MG, BID
     Route: 048
  5. BUPROPION. [Suspect]
     Active Substance: BUPROPION
     Dosage: 150 MG, QD
     Route: 048
  6. BUPROPION. [Suspect]
     Active Substance: BUPROPION
     Dosage: 75 MG, TID
     Route: 048
  7. BUPROPION. [Suspect]
     Active Substance: BUPROPION
     Dosage: 75 MG, BID
     Route: 048

REACTIONS (30)
  - Radiculopathy [Unknown]
  - Insomnia [Unknown]
  - Hallucination [Unknown]
  - Mental status changes [Unknown]
  - Neck pain [Unknown]
  - Parkinson^s disease [Unknown]
  - Hallucination, visual [Unknown]
  - Neuralgia [Unknown]
  - Lethargy [Unknown]
  - Hypertonia [Unknown]
  - Fatigue [Unknown]
  - Back pain [Unknown]
  - Dyskinesia [Unknown]
  - Depression [Unknown]
  - Hypoaesthesia [Unknown]
  - Hemiparesis [Unknown]
  - Pain [Unknown]
  - Essential tremor [Unknown]
  - Paraesthesia [Unknown]
  - Dizziness [Unknown]
  - Gait disturbance [Unknown]
  - Hemiplegia [Unknown]
  - Balance disorder [Unknown]
  - Pain in extremity [Unknown]
  - Tremor [Unknown]
  - Muscular weakness [Unknown]
  - Osteoarthritis [Unknown]
  - Anxiety [Unknown]
  - Musculoskeletal pain [Unknown]
  - Neuropathy peripheral [Unknown]
